FAERS Safety Report 9052671 (Version 1)
Quarter: 2013Q1

REPORT INFORMATION
  Report Type: Spontaneous
  Country: US (occurrence: US)
  Receive Date: 20130207
  Receipt Date: 20130207
  Transmission Date: 20140127
  Serious: No
  Sender: FDA-Public Use
  Company Number: US-PFIZER INC-2013044357

PATIENT
  Sex: Male
  Weight: 82.54 kg

DRUGS (1)
  1. GEOCILLIN [Suspect]
     Indication: PROSTATE INFECTION
     Dosage: 382 MG TWO TABLETS, 4X/DAY
     Route: 048
     Dates: start: 19800822

REACTIONS (5)
  - Fall [Unknown]
  - Toxicity to various agents [Recovered/Resolved]
  - Electrolyte imbalance [Recovered/Resolved]
  - Paraesthesia [Recovered/Resolved]
  - Emotional disorder [Recovered/Resolved]
